FAERS Safety Report 12661921 (Version 5)
Quarter: 2016Q3

REPORT INFORMATION
  Report Type: Report from Study
  Country: AU (occurrence: AU)
  Receive Date: 20160817
  Receipt Date: 20160914
  Transmission Date: 20161109
  Serious: Yes (Hospitalization)
  Sender: FDA-Public Use
  Company Number: AU-ABBVIE-16P-008-1702040-00

PATIENT
  Age: 75 Year
  Sex: Male

DRUGS (6)
  1. DUODOPA [Suspect]
     Active Substance: CARBIDOPA\LEVODOPA
     Dosage: 5.0ML/HR
     Route: 050
     Dates: start: 2016, end: 2016
  2. DUODOPA [Suspect]
     Active Substance: CARBIDOPA\LEVODOPA
     Dosage: MORNING DOSE 16ML; CONTINUOUS RATE 5.5 ML/HR; EXTRA DOSE 2ML
     Route: 050
     Dates: start: 2016, end: 2016
  3. DUODOPA [Suspect]
     Active Substance: CARBIDOPA\LEVODOPA
     Indication: PARKINSON^S DISEASE
     Route: 050
     Dates: start: 20160302
  4. DUODOPA [Suspect]
     Active Substance: CARBIDOPA\LEVODOPA
     Dosage: 5.5ML/HR
     Route: 050
     Dates: start: 2016, end: 2016
  5. DUODOPA [Suspect]
     Active Substance: CARBIDOPA\LEVODOPA
     Dosage: 4.8ML/HR,16 HOUR INFUSION
     Route: 050
     Dates: start: 20160719
  6. DUODOPA [Suspect]
     Active Substance: CARBIDOPA\LEVODOPA
     Dosage: MORNING DOSE 16ML; CONTINUOUS RATE 6ML/HR; EXTRA DOSE 2ML
     Route: 050
     Dates: start: 2016

REACTIONS (10)
  - Freezing phenomenon [Unknown]
  - Gait disturbance [Unknown]
  - Pain in jaw [Recovering/Resolving]
  - Muscle spasms [Recovering/Resolving]
  - Condition aggravated [Unknown]
  - Mobility decreased [Unknown]
  - Tremor [Unknown]
  - Anxiety [Unknown]
  - Stoma site pain [Recovering/Resolving]
  - Stoma site erythema [Recovering/Resolving]

NARRATIVE: CASE EVENT DATE: 2016
